FAERS Safety Report 4897211-8 (Version None)
Quarter: 2005Q4

REPORT INFORMATION
  Report Type: 
  Country: None (occurrence: None)
  Receive Date: 20051223
  Receipt Date: 20051006
  Transmission Date: 20060501
  Serious: No
  Sender: FDA-Public Use
  Company Number: 05P-163-0313031-00

PATIENT
  Age: 76 Year
  Sex: Female
  Weight: 84.369 kg

DRUGS (13)
  1. HUMIRA [Suspect]
     Indication: RHEUMATOID ARTHRITIS
     Dosage: 40 MG, 1 IN 2 WK, SUBCUTANEOUS
     Route: 058
     Dates: start: 20050201, end: 20050901
  2. METHOTREXATE [Concomitant]
  3. VICODIN [Concomitant]
  4. THIAZIDE [Concomitant]
  5. SULTOPRIDE [Concomitant]
  6. DOXALYN [Concomitant]
  7. PRENIDERM [Concomitant]
  8. ASPIRIN [Concomitant]
  9. GLIPIZIDE [Concomitant]
  10. ESOMEPRAZOLE [Concomitant]
  11. CALCIUM GLUCONATE [Concomitant]
  12. MULTIVITAMIN [Concomitant]
  13. AMLODIPINE BESYLATE [Concomitant]

REACTIONS (2)
  - DRUG INEFFECTIVE [None]
  - WHITE BLOOD CELL COUNT DECREASED [None]
